FAERS Safety Report 9469318 (Version 1)
Quarter: 2013Q3

REPORT INFORMATION
  Report Type: Spontaneous
  Country: US (occurrence: None)
  Receive Date: 20130815
  Receipt Date: 20130815
  Transmission Date: 20140515
  Serious: Yes (Hospitalization)
  Sender: FDA-Public Use
  Company Number: 1838223

PATIENT
  Age: 64 Year
  Sex: Female

DRUGS (5)
  1. KETAMINE HYDROCHLORIDE [Suspect]
     Indication: OBSESSIVE-COMPULSIVE DISORDER
     Route: 041
  2. ACETYLCYSTEINE [Suspect]
     Indication: MENTAL DISORDER
  3. FLUVOXAMINE [Suspect]
     Indication: MENTAL DISORDER
  4. RILUZOLE [Suspect]
     Indication: MENTAL DISORDER
  5. ALPRAZOLAM [Suspect]
     Indication: MENTAL DISORDER

REACTIONS (17)
  - Dysphoria [None]
  - Anxiety [None]
  - Suicidal ideation [None]
  - Drug interaction [None]
  - Off label use [None]
  - Depersonalisation [None]
  - Paraesthesia oral [None]
  - Paraesthesia [None]
  - Nausea [None]
  - Asthenia [None]
  - Disturbance in attention [None]
  - Middle insomnia [None]
  - Decreased appetite [None]
  - Poor quality sleep [None]
  - Fear [None]
  - Condition aggravated [None]
  - Depressive symptom [None]
